FAERS Safety Report 11467216 (Version 1)
Quarter: 2015Q3

REPORT INFORMATION
  Report Type: Spontaneous
  Country: GB (occurrence: GB)
  Receive Date: 20150908
  Receipt Date: 20150908
  Transmission Date: 20151125
  Serious: Yes (Hospitalization, Disabling)
  Sender: FDA-Public Use
  Company Number: GB-AUROBINDO-AUR-APL-2015-07656

PATIENT
  Age: 6 Month
  Sex: Female

DRUGS (7)
  1. PHENYTOIN. [Suspect]
     Active Substance: PHENYTOIN
     Indication: SEIZURE
     Dosage: 9MG PER DAY
     Route: 065
  2. IBUPROFEN. [Concomitant]
     Active Substance: IBUPROFEN
     Indication: PRODUCT USED FOR UNKNOWN INDICATION
     Route: 065
  3. AUGMENTIN [Suspect]
     Active Substance: AMOXICILLIN\CLAVULANATE POTASSIUM
     Indication: INFLUENZA
     Dosage: UNK
     Route: 065
     Dates: start: 19960101
  4. MELATONIN [Concomitant]
     Active Substance: MELATONIN
     Dosage: 10MG AT NIGHT
  5. LAMICTAL [Suspect]
     Active Substance: LAMOTRIGINE
     Indication: SEIZURE
     Dosage: 75MG TWICE PER DAY
     Route: 048
  6. ZINC [Concomitant]
     Active Substance: ZINC\ZINC CHLORIDE
  7. AMOXICILLIN. [Concomitant]
     Active Substance: AMOXICILLIN
     Indication: PRODUCT USED FOR UNKNOWN INDICATION

REACTIONS (30)
  - Vomiting projectile [Unknown]
  - Tremor [Unknown]
  - Malaise [Unknown]
  - Drug ineffective [Unknown]
  - Petit mal epilepsy [Unknown]
  - Cognitive disorder [Unknown]
  - Drug hypersensitivity [Unknown]
  - Upper respiratory tract infection [Unknown]
  - Crying [Unknown]
  - General physical health deterioration [Unknown]
  - Autism [Not Recovered/Not Resolved]
  - Incontinence [Unknown]
  - Lactose intolerance [Unknown]
  - Peripheral coldness [Unknown]
  - Pain [Unknown]
  - Status epilepticus [Unknown]
  - Drop attacks [Unknown]
  - Epilepsy [Unknown]
  - Pharyngeal oedema [Not Recovered/Not Resolved]
  - Upper limb fracture [Unknown]
  - Candida infection [Not Recovered/Not Resolved]
  - Rash [Not Recovered/Not Resolved]
  - Diarrhoea [Unknown]
  - Impaired self-care [Unknown]
  - Dyskinesia [Unknown]
  - Epistaxis [Unknown]
  - Seizure [Unknown]
  - Urinary retention [Not Recovered/Not Resolved]
  - Abnormal faeces [Unknown]
  - Body temperature decreased [Unknown]

NARRATIVE: CASE EVENT DATE: 19960106
